FAERS Safety Report 10288851 (Version 2)
Quarter: 2014Q3

REPORT INFORMATION
  Report Type: Spontaneous
  Country: FI (occurrence: FI)
  Receive Date: 20140709
  Receipt Date: 20140709
  Transmission Date: 20150326
  Serious: Yes (Other)
  Sender: FDA-Public Use
  Company Number: FI-RB PHARMACEUTICALS LIMITED-RB-67718-2014

PATIENT

DRUGS (7)
  1. SELOKEN ZOC/ASA [Concomitant]
     Active Substance: ASPIRIN\METOPROLOL SUCCINATE
     Indication: PALPITATIONS
     Dosage: 47.5 MG, HALF TABLET IN MORNING
     Dates: start: 20131126
  2. SUBOXONE [Suspect]
     Active Substance: BUPRENORPHINE HYDROCHLORIDE\NALOXONE HYDROCHLORIDE
     Dosage: 3 MG, QD
     Route: 048
     Dates: start: 20140512, end: 20140517
  3. SUBOXONE [Suspect]
     Active Substance: BUPRENORPHINE HYDROCHLORIDE\NALOXONE HYDROCHLORIDE
     Dosage: 2 MG, QD
     Route: 048
     Dates: start: 20140518, end: 20140522
  4. OPAMOX [Concomitant]
     Indication: ANXIETY
     Dosage: 15 MG, 1-2 TIMES DAILY
     Dates: start: 20140310
  5. SUBOXONE [Suspect]
     Active Substance: BUPRENORPHINE HYDROCHLORIDE\NALOXONE HYDROCHLORIDE
     Dosage: 4 MG, QD
     Route: 048
     Dates: start: 20140510, end: 20140511
  6. SUBOXONE [Suspect]
     Active Substance: BUPRENORPHINE HYDROCHLORIDE\NALOXONE HYDROCHLORIDE
     Indication: DRUG DEPENDENCE
     Dosage: 6 MG, QD
     Route: 048
     Dates: start: 20140417, end: 20140504
  7. SUBOXONE [Suspect]
     Active Substance: BUPRENORPHINE HYDROCHLORIDE\NALOXONE HYDROCHLORIDE
     Dosage: 5 MG, QD
     Route: 048
     Dates: start: 20140505, end: 20140509

REACTIONS (2)
  - Maternal exposure during pregnancy [Recovered/Resolved]
  - Abortion spontaneous [Recovered/Resolved]

NARRATIVE: CASE EVENT DATE: 20140420
